FAERS Safety Report 5924342-3 (Version None)
Quarter: 2008Q3

REPORT INFORMATION
  Report Type: 
  Country: None (occurrence: None)
  Receive Date: 20080909
  Receipt Date: 20080214
  Transmission Date: 20090109
  Serious: Yes (Death)
  Sender: FDA-Public Use
  Company Number: 163-20785-08020873

PATIENT
  Age: 69 Year
  Sex: Female

DRUGS (4)
  1. THALOMID [Suspect]
     Indication: BRAIN NEOPLASM MALIGNANT
     Dosage: 200 MG, ORAL
     Route: 048
     Dates: start: 20080204, end: 20080205
  2. CHEMOTHERAPY (CHEMOTHERAPEUTICS NOS) [Concomitant]
  3. TEMODAR [Concomitant]
  4. COUMADIN [Concomitant]

REACTIONS (1)
  - DEATH [None]
